FAERS Safety Report 24110067 (Version 2)
Quarter: 2024Q3

REPORT INFORMATION
  Report Type: Spontaneous
  Country: US (occurrence: US)
  Receive Date: 20240718
  Receipt Date: 20240808
  Transmission Date: 20241017
  Serious: Yes (Life-Threatening, Other)
  Sender: UCB
  Company Number: US-UCBSA-2024035804

PATIENT
  Age: 65 Year
  Sex: Male
  Weight: 200 kg

DRUGS (1)
  1. CIMZIA [Suspect]
     Active Substance: CERTOLIZUMAB PEGOL
     Indication: Product used for unknown indication
     Dosage: UNK
     Route: 058
     Dates: start: 20231001

REACTIONS (2)
  - Hypotension [Not Recovered/Not Resolved]
  - Loss of consciousness [Not Recovered/Not Resolved]

NARRATIVE: CASE EVENT DATE: 20231001
